FAERS Safety Report 24833167 (Version 2)
Quarter: 2025Q1

REPORT INFORMATION
  Report Type: Spontaneous
  Country: FR (occurrence: FR)
  Receive Date: 20250111
  Receipt Date: 20250121
  Transmission Date: 20250409
  Serious: Yes (Hospitalization)
  Sender: ABBVIE
  Company Number: FR-ABBVIE-6080643

PATIENT
  Age: 40 Year
  Sex: Male
  Weight: 82 kg

DRUGS (3)
  1. DEPAKOTE [Suspect]
     Active Substance: DIVALPROEX SODIUM
     Indication: Mental disorder
     Dosage: STRENGTH: 500 MG
     Route: 048
     Dates: start: 20240909, end: 20241120
  2. TRIMEPRAZINE [Suspect]
     Active Substance: TRIMEPRAZINE
     Indication: Mental disorder
     Route: 048
     Dates: start: 20241001, end: 20241117
  3. MELATONIN [Suspect]
     Active Substance: MELATONIN
     Indication: Mental disorder
     Route: 048
     Dates: start: 20241001, end: 20241117

REACTIONS (3)
  - Eosinophilia [Recovering/Resolving]
  - Pleural effusion [Not Recovered/Not Resolved]
  - Cough [Not Recovered/Not Resolved]

NARRATIVE: CASE EVENT DATE: 20241021
